FAERS Safety Report 12791959 (Version 1)
Quarter: 2016Q3

REPORT INFORMATION
  Report Type: Spontaneous
  Country: DE (occurrence: DE)
  Receive Date: 20160929
  Receipt Date: 20160929
  Transmission Date: 20161109
  Serious: No
  Sender: FDA-Public Use
  Company Number: DE-JAZZ-2016-DE-012366

PATIENT
  Age: 31 Year
  Sex: Male

DRUGS (5)
  1. ECSTASY [Concomitant]
     Active Substance: METHYLENEDIOXYMETHAMPHETAMINE
  2. TETRAHYDROCANNABINOL [Concomitant]
     Active Substance: DRONABINOL
  3. METHAMPHETAMINE [Concomitant]
     Active Substance: METHAMPHETAMINE
  4. XYREM [Suspect]
     Active Substance: SODIUM OXYBATE
     Indication: PRODUCT USED FOR UNKNOWN INDICATION
     Dosage: UNKNOWN DOSE
     Route: 048
  5. AMPHETAMINE SALTS [Concomitant]
     Active Substance: AMPHETAMINE ASPARTATE\AMPHETAMINE SULFATE\DEXTROAMPHETAMINE SACCHARATE\DEXTROAMPHETAMINE SULFATE

REACTIONS (1)
  - Aggression [Unknown]
